FAERS Safety Report 8459487-X (Version None)
Quarter: 2012Q2

REPORT INFORMATION
  Report Type: 
  Country: None (occurrence: None)
  Receive Date: 20120622
  Receipt Date: 20120614
  Transmission Date: 20120825
  Serious: Yes (Hospitalization, Other)
  Sender: FDA-Public Use
  Company Number: US-US-EMD SERONO, INC.-7119359

PATIENT
  Sex: Female
  Weight: 136 kg

DRUGS (4)
  1. IMITREX [Concomitant]
     Indication: PRODUCT USED FOR UNKNOWN INDICATION
     Dates: start: 20081112
  2. LOESTRIN 1.5/30 [Concomitant]
     Indication: PRODUCT USED FOR UNKNOWN INDICATION
     Dates: start: 20110221
  3. LEXAPRO [Concomitant]
     Indication: PRODUCT USED FOR UNKNOWN INDICATION
     Dates: start: 20110208
  4. REBIF [Suspect]
     Indication: MULTIPLE SCLEROSIS
     Route: 058
     Dates: start: 20100820

REACTIONS (6)
  - NEUTRALISING ANTIBODIES [None]
  - NASOPHARYNGITIS [None]
  - UTERINE LEIOMYOMA [None]
  - INJECTION SITE PAIN [None]
  - MIGRAINE [None]
  - CENTRAL NERVOUS SYSTEM LESION [None]
